FAERS Safety Report 5089571-2 (Version None)
Quarter: 2006Q3

REPORT INFORMATION
  Report Type: 
  Country: None (occurrence: None)
  Receive Date: 20060822
  Receipt Date: 20060809
  Transmission Date: 20061208
  Serious: Yes (Hospitalization, Other)
  Sender: FDA-Public Use
  Company Number: 2006098040

PATIENT
  Sex: Female

DRUGS (5)
  1. LYRICA [Suspect]
     Indication: DRUG USE FOR UNKNOWN INDICATION
     Dosage: 75 MG
     Dates: start: 20051116
  2. BLINDED THERAPY (BLINDED THERAPY) [Suspect]
     Indication: GLIOBLASTOMA MULTIFORME
     Dates: start: 20050913, end: 20050917
  3. FLUVASTATIN [Concomitant]
  4. PAROXETINE HCL [Concomitant]
  5. LEVETIRACETAM [Concomitant]

REACTIONS (8)
  - BRAIN OEDEMA [None]
  - CONVULSION [None]
  - FACIAL PALSY [None]
  - HEADACHE [None]
  - HYPOAESTHESIA [None]
  - VISION BLURRED [None]
  - VISUAL DISTURBANCE [None]
  - VISUAL FIELD DEFECT [None]
